FAERS Safety Report 8711765 (Version 2)
Quarter: 2013Q4

REPORT INFORMATION
  Report Type: Spontaneous
  Country: US (occurrence: US)
  Receive Date: 20120807
  Receipt Date: 20131009
  Transmission Date: 20140711
  Serious: Yes (Hospitalization)
  Sender: FDA-Public Use
  Company Number: US-BAYER-2012-076581

PATIENT
  Age: 36 Year
  Sex: Female
  Weight: 82 kg

DRUGS (11)
  1. BEYAZ [Suspect]
  2. YAZ [Suspect]
  3. YASMIN [Suspect]
  4. HYDROCHLOROTHIAZIDE [Concomitant]
     Dosage: 25 MG DAILY, UNK
     Route: 048
  5. SYNTHROID [Concomitant]
     Dosage: 100 MCG DAILY
     Route: 048
  6. NEURONTIN [Concomitant]
     Dosage: 300 MG,TID
     Route: 048
  7. HYDROCODONE W/IBUPROFEN [Concomitant]
     Dosage: 7.5-200
     Route: 048
  8. PROTONIX [Concomitant]
  9. ZOFRAN [Concomitant]
  10. ZOLPIDEM [Concomitant]
  11. DILAUDID [Concomitant]

REACTIONS (9)
  - Pulmonary embolism [None]
  - Dyspnoea [None]
  - Chest pain [None]
  - Electrocardiogram abnormal [None]
  - Deep vein thrombosis [None]
  - Deep vein thrombosis [None]
  - Oedema peripheral [None]
  - Thrombosis [None]
  - Myocardial infarction [None]
